FAERS Safety Report 7036864-5 (Version None)
Quarter: 2010Q4

REPORT INFORMATION
  Report Type: 
  Country: None (occurrence: None)
  Receive Date: 20101011
  Receipt Date: 20101001
  Transmission Date: 20110411
  Serious: Yes (Life-Threatening, Hospitalization)
  Sender: FDA-Public Use
  Company Number: ES-BAYER-201041599GPV

PATIENT
  Age: 60 Year
  Sex: Female
  Weight: 54 kg

DRUGS (4)
  1. SORAFENIB [Suspect]
     Route: 048
     Dates: start: 20100812, end: 20100919
  2. IFOSFAMIDE [Suspect]
     Route: 042
     Dates: start: 20100811, end: 20100910
  3. MESNA [Suspect]
     Route: 042
     Dates: start: 20100711, end: 20100909
  4. MESNA [Suspect]
     Route: 048
     Dates: start: 20100813, end: 20100910

REACTIONS (2)
  - FEBRILE NEUTROPENIA [None]
  - URINARY TRACT INFECTION [None]
